FAERS Safety Report 6521688-5 (Version None)
Quarter: 2009Q4

REPORT INFORMATION
  Report Type: 
  Country: None (occurrence: None)
  Receive Date: 20091230
  Receipt Date: 20091223
  Transmission Date: 20100525
  Serious: Yes (Disabling, Other)
  Sender: FDA-Public Use
  Company Number: PHHY2008CA30030

PATIENT
  Sex: Female

DRUGS (3)
  1. ACLASTA [Suspect]
     Indication: OSTEOPOROSIS
     Dosage: 5 MG
     Route: 042
     Dates: start: 20081126
  2. CALCIUM CARBONATE [Concomitant]
     Dosage: 500 MG, BID
  3. OSTOFORTE [Concomitant]
     Dosage: Q WEEK

REACTIONS (8)
  - ABDOMINAL DISCOMFORT [None]
  - ASTHENIA [None]
  - BONE PAIN [None]
  - FEELING ABNORMAL [None]
  - HEADACHE [None]
  - MUSCLE SPASMS [None]
  - MYALGIA [None]
  - PYREXIA [None]
